FAERS Safety Report 6273843-X (Version None)
Quarter: 2009Q3

REPORT INFORMATION
  Report Type: 
  Country: None (occurrence: None)
  Receive Date: 20090720
  Receipt Date: 20090708
  Transmission Date: 20100115
  Serious: Yes (Hospitalization)
  Sender: FDA-Public Use
  Company Number: JP-PFIZER INC-2009239242

PATIENT
  Age: 30 Year

DRUGS (4)
  1. ZITHROMAX [Suspect]
     Dosage: 500 MG, 1X/DAY
     Route: 048
     Dates: start: 20090528, end: 20090530
  2. PL GRAN. [Suspect]
     Dosage: 1 G, 3X/DAY
     Route: 048
     Dates: start: 20090528, end: 20090530
  3. EPINASTINE HYDROCHLORIDE [Suspect]
     Dosage: 20 MG, 1X/DAY
     Route: 048
     Dates: start: 20090528, end: 20090530
  4. BROCIN [Suspect]
     Dosage: FREQUENCY: 2X/DAY,
     Route: 048
     Dates: start: 20090528, end: 20090530

REACTIONS (5)
  - ABDOMINAL PAIN [None]
  - DIARRHOEA [None]
  - DYSPNOEA [None]
  - HEPATIC FUNCTION ABNORMAL [None]
  - MALAISE [None]
